FAERS Safety Report 4597887-9 (Version None)
Quarter: 2005Q1

REPORT INFORMATION
  Report Type: 
  Country: None (occurrence: None)
  Receive Date: 20050301
  Receipt Date: 20050223
  Transmission Date: 20050727
  Serious: Yes (Life-Threatening, Other)
  Sender: FDA-Public Use
  Company Number: 2005-BP-02830RO

PATIENT
  Age: 63 Year
  Sex: Male

DRUGS (2)
  1. LEUCOVORIN CALCIUM [Suspect]
     Indication: RECTAL CANCER
     Dosage: 75 MG/DAY/CYCLE, PO
     Route: 048
     Dates: start: 20041116, end: 20050110
  2. UFT [Suspect]
     Indication: RECTAL CANCER
     Dosage: 5 CAPSULES/DAY/CYCLE , PO
     Route: 048
     Dates: start: 20041116, end: 20050110

REACTIONS (1)
  - DIARRHOEA [None]
